FAERS Safety Report 4468342-1 (Version None)
Quarter: 2004Q4

REPORT INFORMATION
  Report Type: 
  Country: None (occurrence: None)
  Receive Date: 20041007
  Receipt Date: 20040929
  Transmission Date: 20050328
  Serious: Yes (Hospitalization)
  Sender: FDA-Public Use
  Company Number: PHRM2004FR02968

PATIENT
  Age: 62 Year
  Sex: Male

DRUGS (3)
  1. ESIDRIX [Suspect]
     Dosage: 25 MG/DAY
     Route: 048
     Dates: end: 20031212
  2. LASILIX [Suspect]
     Dosage: 375 MG/DAY
     Route: 048
     Dates: end: 20031212
  3. DIGITALINE NATIVELLE [Concomitant]
     Dosage: 1 DF/DAY

REACTIONS (12)
  - BLOOD CREATININE INCREASED [None]
  - BLOOD PRESSURE DECREASED [None]
  - BLOOD SODIUM DECREASED [None]
  - BLOOD UREA INCREASED [None]
  - CARDIOACTIVE DRUG LEVEL INCREASED [None]
  - DEHYDRATION [None]
  - LOSS OF CONSCIOUSNESS [None]
  - MALAISE [None]
  - RENAL FAILURE ACUTE [None]
  - SYNCOPE [None]
  - THERAPEUTIC AGENT TOXICITY [None]
  - VISUAL DISTURBANCE [None]
